FAERS Safety Report 15696992 (Version 3)
Quarter: 2019Q2

REPORT INFORMATION
  Report Type: Spontaneous
  Country: JP (occurrence: JP)
  Receive Date: 20181206
  Receipt Date: 20190402
  Transmission Date: 20190711
  Serious: Yes (Other)
  Sender: FDA-Public Use
  Company Number: JP-ASTRAZENECA-2018SF58425

PATIENT
  Age: 23498 Day
  Sex: Female
  Weight: 36 kg

DRUGS (14)
  1. IMFINZI [Suspect]
     Active Substance: DURVALUMAB
     Indication: NON-SMALL CELL LUNG CANCER
     Route: 042
     Dates: start: 20181030, end: 20181113
  2. IMFINZI [Suspect]
     Active Substance: DURVALUMAB
     Indication: NON-SMALL CELL LUNG CANCER
     Dosage: REDUCED DOSE OF 10 MG/DAY
     Route: 042
     Dates: start: 20190219
  3. IMFINZI [Suspect]
     Active Substance: DURVALUMAB
     Indication: NON-SMALL CELL LUNG CANCER
     Dosage: REDUCED DOSE OF 5 MG/DAY
     Route: 042
     Dates: start: 20190319
  4. ALFAROL [Concomitant]
     Active Substance: ALFACALCIDOL
     Indication: PROPHYLAXIS
     Route: 048
     Dates: start: 20181127
  5. PREDONINE [Concomitant]
     Active Substance: PREDNISOLONE
     Dosage: REDUCED TO 20 MG/DAY
     Dates: start: 20190108
  6. PREDONINE [Concomitant]
     Active Substance: PREDNISOLONE
     Dosage: INCREASED TO 30 MG/DAY
     Dates: start: 20181203
  7. IMFINZI [Suspect]
     Active Substance: DURVALUMAB
     Indication: NON-SMALL CELL LUNG CANCER
     Dosage: REDUCED DOSE OF 7.5 MG/DAY
     Route: 042
     Dates: start: 20190305
  8. IMFINZI [Suspect]
     Active Substance: DURVALUMAB
     Indication: NON-SMALL CELL LUNG CANCER
     Route: 042
     Dates: start: 20190205
  9. NEXIUM [Concomitant]
     Active Substance: ESOMEPRAZOLE MAGNESIUM
     Indication: PROPHYLAXIS
     Route: 048
     Dates: start: 20181127
  10. DAIPHEN [Concomitant]
     Active Substance: SULFAMETHOXAZOLE\TRIMETHOPRIM
     Indication: PROPHYLAXIS
     Dates: start: 20181127, end: 20190304
  11. PREDONINE [Concomitant]
     Active Substance: PREDNISOLONE
     Dosage: REDUCED TO 15 MG/DAY
     Dates: start: 20190122
  12. PREDONINE [Concomitant]
     Active Substance: PREDNISOLONE
  13. IMFINZI [Suspect]
     Active Substance: DURVALUMAB
     Indication: NON-SMALL CELL LUNG CANCER
     Dosage: REDUCED OF 12.5 MG/DAY
     Route: 042
  14. PREDONINE [Concomitant]
     Active Substance: PREDNISOLONE
     Dosage: REDUCED TO 25 MG/DAY
     Dates: start: 20181225

REACTIONS (1)
  - Interstitial lung disease [Recovered/Resolved]

NARRATIVE: CASE EVENT DATE: 20181127
